FAERS Safety Report 5456711-2 (Version None)
Quarter: 2007Q3

REPORT INFORMATION
  Report Type: 
  Country: None (occurrence: None)
  Receive Date: 20070918
  Receipt Date: 20070330
  Transmission Date: 20080115
  Serious: Yes (Hospitalization)
  Sender: FDA-Public Use
  Company Number: US-ASTRAZENECA-2006UW25793

PATIENT
  Age: 585 Month
  Sex: Female
  Weight: 80.5 kg

DRUGS (5)
  1. SEROQUEL [Suspect]
     Indication: DEPRESSION
     Route: 048
     Dates: start: 20000101, end: 20060101
  2. SEROQUEL [Suspect]
     Indication: ANXIETY
     Route: 048
     Dates: start: 20000101, end: 20060101
  3. RISPERDAL [Concomitant]
  4. ZYPREXA [Concomitant]
  5. PAXIL [Concomitant]

REACTIONS (3)
  - DIABETES MELLITUS [None]
  - HERNIA [None]
  - PANCREATITIS [None]
